FAERS Safety Report 10548711 (Version 2)
Quarter: 2015Q1

REPORT INFORMATION
  Report Type: Spontaneous
  Country: CA (occurrence: CA)
  Receive Date: 20141028
  Receipt Date: 20150211
  Transmission Date: 20150720
  Serious: Yes (Hospitalization, Other)
  Sender: FDA-Public Use
  Company Number: CA-SA-2014SA143340

PATIENT
  Age: 46 Year
  Sex: Female
  Weight: 49.9 kg

DRUGS (16)
  1. PERTUZUMAB [Suspect]
     Active Substance: PERTUZUMAB
     Indication: HER-2 POSITIVE BREAST CANCER
     Route: 042
     Dates: start: 20131007, end: 20131119
  2. TYLENOL [Concomitant]
     Active Substance: ACETAMINOPHEN
     Dates: start: 2005
  3. TAXOTERE [Suspect]
     Active Substance: DOCETAXEL
     Indication: PRODUCT USED FOR UNKNOWN INDICATION
     Route: 042
  4. DEXAMETHASONE. [Concomitant]
     Active Substance: DEXAMETHASONE
     Dates: start: 201402
  5. DILANTIN [Concomitant]
     Active Substance: PHENYTOIN
     Dates: start: 201309
  6. RANITIDINE [Concomitant]
     Active Substance: RANITIDINE\RANITIDINE HYDROCHLORIDE
  7. ZOPICLONE [Concomitant]
     Active Substance: ZOPICLONE
     Route: 048
     Dates: start: 2005
  8. BISOPROLOL [Concomitant]
     Active Substance: BISOPROLOL
     Dates: start: 201402
  9. DILAUDID [Concomitant]
     Active Substance: HYDROMORPHONE HYDROCHLORIDE
  10. NABILONE [Concomitant]
     Active Substance: NABILONE
     Dates: start: 201402
  11. HALOPERIDOL. [Concomitant]
     Active Substance: HALOPERIDOL
     Dates: start: 201312
  12. PAROXETINE HYDROCHLORIDE. [Concomitant]
     Active Substance: PAROXETINE HYDROCHLORIDE
     Route: 048
     Dates: start: 2005
  13. TECTA [Concomitant]
     Active Substance: PANTOPRAZOLE MAGNESIUM
     Dates: start: 201312
  14. DIGOXIN. [Concomitant]
     Active Substance: DIGOXIN
     Dates: start: 201309
  15. TRASTUZUMAB [Suspect]
     Active Substance: TRASTUZUMAB
     Indication: PRODUCT USED FOR UNKNOWN INDICATION
     Dosage: DURATION- 365
     Route: 065
     Dates: start: 2005, end: 2006
  16. ONDANSETRON [Concomitant]
     Active Substance: ONDANSETRON
     Dates: start: 201312

REACTIONS (9)
  - Cardiac output decreased [Unknown]
  - Breast cancer [Not Recovered/Not Resolved]
  - Weight decreased [Not Recovered/Not Resolved]
  - Diarrhoea [Unknown]
  - Lung disorder [Unknown]
  - Headache [Recovered/Resolved]
  - Syncope [Unknown]
  - Condition aggravated [Unknown]
  - Nausea [Not Recovered/Not Resolved]

NARRATIVE: CASE EVENT DATE: 2006
